FAERS Safety Report 6309347-5 (Version None)
Quarter: 2009Q3

REPORT INFORMATION
  Report Type: 
  Country: None (occurrence: None)
  Receive Date: 20090811
  Receipt Date: 20090706
  Transmission Date: 20100115
  Serious: No
  Sender: FDA-Public Use
  Company Number: 1000006389

PATIENT
  Age: 38 Year
  Sex: Female

DRUGS (7)
  1. SAVELLA [Suspect]
     Indication: FIBROMYALGIA
     Dosage: 12.5 MG (12.5 MG,1 IN 1 D),ORAL;  25 MG (12.5 MG, 2 IN 1 D),ORAL
     Route: 048
     Dates: start: 20090516, end: 20090516
  2. SAVELLA [Suspect]
     Indication: FIBROMYALGIA
     Dosage: 12.5 MG (12.5 MG,1 IN 1 D),ORAL;  25 MG (12.5 MG, 2 IN 1 D),ORAL
     Route: 048
     Dates: start: 20090517, end: 20090518
  3. SAVELLA [Suspect]
     Indication: FIBROMYALGIA
     Dosage: 50 MG (25 MG, 2 IN 1 D),ORAL
     Route: 048
     Dates: start: 20090519, end: 20090521
  4. MACROBID [Suspect]
     Indication: CYSTITIS
     Dosage: ORAL
     Route: 048
     Dates: start: 20090514, end: 20090520
  5. PROZAC [Concomitant]
  6. VICODIN [Concomitant]
  7. DARVOCET [Concomitant]

REACTIONS (3)
  - ABDOMINAL PAIN UPPER [None]
  - DRUG INTERACTION [None]
  - VAGINAL HAEMORRHAGE [None]
